FAERS Safety Report 8276655-0 (Version None)
Quarter: 2012Q2

REPORT INFORMATION
  Report Type: 
  Country: None (occurrence: None)
  Receive Date: 20120412
  Receipt Date: 20120409
  Transmission Date: 20120825
  Serious: Yes (Other)
  Sender: FDA-Public Use
  Company Number: US-RB-037672-12

PATIENT
  Age: 72 Year
  Sex: Male

DRUGS (4)
  1. MUCINEX DM [Suspect]
     Indication: PRODUCT USED FOR UNKNOWN INDICATION
     Dosage: 3 MONTHS AGO, RIGHT BEFORE CHRISTMAS, TOOK ^A FEW^ TABLETS
     Route: 048
  2. INSULIN [Concomitant]
     Indication: DIABETES MELLITUS
  3. AMITRIPTYLINE HYDROCHLORIDE [Concomitant]
     Indication: PRODUCT USED FOR UNKNOWN INDICATION
  4. ASPIRIN [Concomitant]
     Indication: PRODUCT USED FOR UNKNOWN INDICATION

REACTIONS (7)
  - DIZZINESS [None]
  - ABDOMINAL PAIN UPPER [None]
  - FEELING HOT [None]
  - BLOOD PRESSURE INCREASED [None]
  - HYPERSENSITIVITY [None]
  - NAUSEA [None]
  - URTICARIA [None]
